FAERS Safety Report 5612578-0 (Version None)
Quarter: 2008Q1

REPORT INFORMATION
  Report Type: 
  Country: None (occurrence: None)
  Receive Date: 20080204
  Receipt Date: 20080124
  Transmission Date: 20080703
  Serious: Yes (Hospitalization, Congenital Anomaly)
  Sender: FDA-Public Use
  Company Number: A0695260A

PATIENT
  Sex: Male

DRUGS (2)
  1. PAXIL CR [Suspect]
     Indication: ANXIETY
     Dosage: 25MG PER DAY
     Dates: start: 20030211, end: 20050101
  2. PRENATAL VITAMINS [Concomitant]
     Dates: start: 20030701, end: 20040201

REACTIONS (26)
  - ACIDOSIS [None]
  - ATELECTASIS [None]
  - ATRIAL SEPTAL DEFECT [None]
  - BLEPHAROSPASM [None]
  - BLOOD PRESSURE INCREASED [None]
  - BRAIN HYPOXIA [None]
  - CARDIAC FAILURE CONGESTIVE [None]
  - CARDIAC MURMUR [None]
  - CARDIAC OUTPUT DECREASED [None]
  - CARDIOMEGALY [None]
  - CEREBRAL HAEMORRHAGE [None]
  - CONGENITAL CARDIOVASCULAR ANOMALY [None]
  - CONGENITAL PULMONARY ARTERY ANOMALY [None]
  - CONVULSION [None]
  - DILATATION ATRIAL [None]
  - DILATATION VENTRICULAR [None]
  - DRUG EXPOSURE DURING PREGNANCY [None]
  - HYPERREFLEXIA [None]
  - HYPOVOLAEMIA [None]
  - MULTIPLE CONGENITAL ABNORMALITIES [None]
  - OXYGEN SATURATION DECREASED [None]
  - PNEUMATOSIS [None]
  - PULMONARY HYPERTENSION [None]
  - RIGHT VENTRICULAR HYPERTROPHY [None]
  - TRICUSPID VALVE INCOMPETENCE [None]
  - VENTRICULAR SEPTAL DEFECT [None]
